FAERS Safety Report 4821249-X (Version None)
Quarter: 2005Q4

REPORT INFORMATION
  Report Type: 
  Country: None (occurrence: None)
  Receive Date: 20051107
  Receipt Date: 20051103
  Transmission Date: 20060501
  Serious: Yes (Life-Threatening, Other)
  Sender: FDA-Public Use
  Company Number: PHFR2005GB03606

PATIENT
  Age: 31 Year
  Sex: Female

DRUGS (2)
  1. CLOZAPINE [Suspect]
     Indication: BORDERLINE PERSONALITY DISORDER
     Dosage: 100MG OM, 200MG NOCTE
     Route: 048
     Dates: end: 20051012
  2. PABRINEX [Concomitant]
     Dosage: UNK, UNK
     Route: 042
     Dates: start: 20051012, end: 20051015

REACTIONS (4)
  - HYPERTHERMIA [None]
  - MENINGITIS [None]
  - MUSCLE RIGIDITY [None]
  - NEUROLEPTIC MALIGNANT SYNDROME [None]
